FAERS Safety Report 6139147-0 (Version None)
Quarter: 2009Q2

REPORT INFORMATION
  Report Type: 
  Country: None (occurrence: None)
  Receive Date: 20090401
  Receipt Date: 20090305
  Transmission Date: 20091009
  Serious: Yes (Hospitalization)
  Sender: FDA-Public Use
  Company Number: US-PFIZER INC-2008080659

PATIENT
  Sex: Female
  Weight: 74 kg

DRUGS (4)
  1. SOLU-MEDROL [Suspect]
     Indication: MULTIPLE SCLEROSIS
     Route: 042
  2. REBIF [Suspect]
     Indication: MULTIPLE SCLEROSIS
     Dosage: 3 EVERY 1 WEEKS
     Route: 058
     Dates: start: 20030401, end: 20080401
  3. TYLENOL [Concomitant]
     Indication: BACK PAIN
     Dosage: UNK
  4. BACLOFEN [Concomitant]
     Indication: MUSCLE SPASMS
     Dosage: UNK

REACTIONS (5)
  - HEADACHE [None]
  - INJECTION SITE REACTION [None]
  - MULTIPLE SCLEROSIS RELAPSE [None]
  - MYELITIS TRANSVERSE [None]
  - NAUSEA [None]
